FAERS Safety Report 25554944 (Version 1)
Quarter: 2025Q3

REPORT INFORMATION
  Report Type: Spontaneous
  Country: SG (occurrence: SG)
  Receive Date: 20250715
  Receipt Date: 20250715
  Transmission Date: 20251020
  Serious: Yes (Other)
  Sender: SENTISS AG
  Company Number: SG-SENTISSAG-2025SAGLIT-00014

PATIENT
  Age: 78 Year
  Sex: Female

DRUGS (1)
  1. LIDOCAINE HYDROCHLORIDE [Suspect]
     Active Substance: LIDOCAINE HYDROCHLORIDE
     Indication: Product used for unknown indication
     Route: 014

REACTIONS (2)
  - Arthritis infective [Recovered/Resolved]
  - Osteomyelitis fungal [Recovered/Resolved]
